FAERS Safety Report 6024467-0 (Version None)
Quarter: 2008Q4

REPORT INFORMATION
  Report Type: 
  Country: None (occurrence: None)
  Receive Date: 20081231
  Receipt Date: 20081105
  Transmission Date: 20090506
  Serious: No
  Sender: FDA-Public Use
  Company Number: US-BRISTOL-MYERS SQUIBB COMPANY-14286728

PATIENT
  Age: 42 Year
  Sex: Female
  Weight: 104 kg

DRUGS (5)
  1. ORENCIA [Suspect]
     Indication: RHEUMATOID ARTHRITIS
     Route: 042
     Dates: start: 20080603
  2. FOLIC ACID [Concomitant]
  3. VITAMINS [Concomitant]
  4. METHOTREXATE [Concomitant]
  5. DOXYCYCLINE [Concomitant]
     Dosage: 7 DAYS

REACTIONS (1)
  - PHOTOSENSITIVITY REACTION [None]
